FAERS Safety Report 19601662 (Version 2)
Quarter: 2021Q3

REPORT INFORMATION
  Report Type: Spontaneous
  Country: DE (occurrence: DE)
  Receive Date: 20210723
  Receipt Date: 20210805
  Transmission Date: 20211014
  Serious: Yes (Hospitalization, Other)
  Sender: FDA-Public Use
  Company Number: DE-TORRENT-00020761

PATIENT
  Age: 39 Year
  Sex: Female

DRUGS (4)
  1. SERTRALINE [Suspect]
     Active Substance: SERTRALINE HYDROCHLORIDE
     Indication: PRODUCT USED FOR UNKNOWN INDICATION
     Dates: start: 2019
  2. TAPENTADOL RETARD [Suspect]
     Active Substance: TAPENTADOL
     Indication: PRODUCT USED FOR UNKNOWN INDICATION
     Dosage: PER DAY;DAILY DOSE BETWEEN 100 AND 200MG.
     Dates: start: 20210116, end: 20210207
  3. OXYCODONE [Suspect]
     Active Substance: OXYCODONE
     Indication: PRODUCT USED FOR UNKNOWN INDICATION
     Dosage: FOR A SHORT TIME AGO
     Dates: start: 20210115
  4. PREGABALIN. [Concomitant]
     Active Substance: PREGABALIN
     Indication: PRODUCT USED FOR UNKNOWN INDICATION
     Dates: start: 2017

REACTIONS (8)
  - Muscle twitching [Not Recovered/Not Resolved]
  - Myoclonic epilepsy [Recovered/Resolved]
  - Vision blurred [Recovered/Resolved]
  - Gaze palsy [Recovered/Resolved]
  - Muscle spasms [Recovered/Resolved]
  - Seizure [Recovered/Resolved]
  - Disorientation [Recovered/Resolved]
  - Amnestic disorder [Recovered/Resolved]

NARRATIVE: CASE EVENT DATE: 202101
